FAERS Safety Report 18380334 (Version 4)
Quarter: 2021Q1

REPORT INFORMATION
  Report Type: Spontaneous
  Country: US (occurrence: US)
  Receive Date: 20201014
  Receipt Date: 20210114
  Transmission Date: 20210419
  Serious: Yes (Other)
  Sender: FDA-Public Use
  Company Number: US-GILEAD-2020-0498245

PATIENT
  Sex: Male

DRUGS (6)
  1. SOFOSBUVIR;VELPATASVIR [Suspect]
     Active Substance: SOFOSBUVIR\VELPATASVIR
     Indication: CHRONIC HEPATITIS C
     Dosage: 1 DOSAGE FORM, QD
     Route: 048
     Dates: start: 202009, end: 20210106
  2. FLOVENT [Concomitant]
     Active Substance: FLUTICASONE PROPIONATE
  3. IBUPROFEN. [Concomitant]
     Active Substance: IBUPROFEN
  4. OMEPRAZOLE. [Concomitant]
     Active Substance: OMEPRAZOLE
  5. ALBUTEROL [SALBUTAMOL] [Concomitant]
     Active Substance: ALBUTEROL
  6. HEROIN [Concomitant]
     Active Substance: DIAMORPHINE

REACTIONS (4)
  - Product dose omission issue [Recovered/Resolved]
  - Memory impairment [Unknown]
  - Substance use [Not Recovered/Not Resolved]
  - Headache [Recovered/Resolved with Sequelae]
